FAERS Safety Report 5067291-8 (Version None)
Quarter: 2006Q3

REPORT INFORMATION
  Report Type: 
  Country: None (occurrence: None)
  Receive Date: 20060727
  Receipt Date: 20060717
  Transmission Date: 20061208
  Serious: Yes (Hospitalization, Other)
  Sender: FDA-Public Use
  Company Number: 2006080833

PATIENT
  Age: 61 Year
  Sex: Male
  Weight: 53 kg

DRUGS (5)
  1. SUTENT [Suspect]
     Indication: RENAL CELL CARCINOMA STAGE UNSPECIFIED
     Dosage: 50 MG (50 MG, FREQUENCY: DAILY INTERVAL: EVERY DAY), ORAL
     Route: 048
     Dates: start: 20060512, end: 20060601
  2. MORPHINE SULFATE [Concomitant]
  3. PRAVASTATIN [Concomitant]
  4. ZESTORETIC [Concomitant]
  5. FELODIPINE [Concomitant]

REACTIONS (3)
  - EPIDURITIS [None]
  - IMPAIRED HEALING [None]
  - SKIN NECROSIS [None]
